FAERS Safety Report 9383721 (Version 2)
Quarter: 2013Q4

REPORT INFORMATION
  Report Type: Report from Study
  Country: US (occurrence: US)
  Receive Date: 20130704
  Receipt Date: 20131001
  Transmission Date: 20140711
  Serious: Yes (Hospitalization)
  Sender: FDA-Public Use
  Company Number: US-ROCHE-1241510

PATIENT
  Age: 44 Year
  Sex: Female
  Weight: 104.87 kg

DRUGS (14)
  1. TRASTUZUMAB [Suspect]
     Indication: HER-2 POSITIVE BREAST CANCER
     Dosage: DATE OF LAST DOSE PRIOR TO SAE: 13/JUN/2013
     Route: 042
     Dates: start: 20121101
  2. TRASTUZUMAB [Suspect]
     Dosage: LOADING DOSE
     Route: 042
  3. COUMADIN [Concomitant]
     Route: 065
     Dates: start: 20121230, end: 20130624
  4. METFORMIN [Concomitant]
     Route: 065
     Dates: start: 201206, end: 20130702
  5. PREDNISONE [Concomitant]
     Route: 065
     Dates: start: 201010
  6. EFFEXOR [Concomitant]
     Route: 065
     Dates: start: 20121012, end: 20130523
  7. LYRICA [Concomitant]
     Route: 065
     Dates: start: 201208, end: 20130702
  8. SINGULAIR [Concomitant]
     Route: 065
  9. XANAX [Concomitant]
     Route: 065
     Dates: start: 20130523
  10. COMPAZINE [Concomitant]
     Route: 065
     Dates: start: 20121101
  11. ZOFRAN [Concomitant]
     Route: 065
     Dates: start: 20121101
  12. IMODIUM [Concomitant]
     Route: 065
     Dates: start: 20121105
  13. PERTUZUMAB [Suspect]
     Indication: HER-2 POSITIVE BREAST CANCER
     Dosage: DATE OF LAST DOSE PRIOR TO SAE: 13/JUN/2013
     Route: 042
     Dates: start: 20121101
  14. PERTUZUMAB [Suspect]
     Dosage: LOADING DOSE
     Route: 042

REACTIONS (1)
  - Haemorrhoids [Recovered/Resolved]
